FAERS Safety Report 6893713-3 (Version None)
Quarter: 2010Q3

REPORT INFORMATION
  Report Type: 
  Country: None (occurrence: None)
  Receive Date: 20100801
  Receipt Date: 20100728
  Transmission Date: 20110219
  Serious: Yes (Hospitalization, Other)
  Sender: FDA-Public Use
  Company Number: US-BRISTOL-MYERS SQUIBB COMPANY-15213697

PATIENT
  Age: 37 Year
  Sex: Female

DRUGS (7)
  1. ABILIFY [Suspect]
  2. ZOLOFT [Concomitant]
  3. LITHIUM [Concomitant]
  4. KLONOPIN [Concomitant]
  5. CLARINEX [Concomitant]
  6. TRAMADOL HYDROCHLORIDE [Concomitant]
  7. VICODIN [Concomitant]

REACTIONS (3)
  - CARDIAC DISORDER [None]
  - DIZZINESS [None]
  - ELECTROCARDIOGRAM QT PROLONGED [None]
